FAERS Safety Report 8910924 (Version 1)
Quarter: 2012Q4

REPORT INFORMATION
  Report Type: 
  Country: US (occurrence: US)
  Receive Date: 20121116
  Receipt Date: 20121116
  Transmission Date: 20130627
  Serious: No
  Sender: FDA-Public Use
  Company Number: US-009507513-1210USA005908

PATIENT
  Age: 43 Year
  Sex: Male
  Weight: 77.98 kg

DRUGS (1)
  1. CLARITIN ORAL SOLUTION [Suspect]
     Indication: HYPERSENSITIVITY
     Dosage: 20 mg, Once
     Route: 048
     Dates: start: 20120826

REACTIONS (1)
  - Accidental overdose [Recovering/Resolving]
